FAERS Safety Report 9137185 (Version 1)
Quarter: 2013Q1

REPORT INFORMATION
  Report Type: Other
  Country: US (occurrence: US)
  Receive Date: 20130304
  Receipt Date: 20130304
  Transmission Date: 20140127
  Serious: No
  Sender: FDA-Public Use
  Company Number: US-ENDO PHARMACEUTICALS INC.-PERC20110124

PATIENT
  Sex: Female

DRUGS (5)
  1. PERCOCET [Suspect]
     Indication: PRODUCT USED FOR UNKNOWN INDICATION
     Dosage: UNKNOWN
     Route: 048
  2. DIAZEPAM [Suspect]
     Indication: PRODUCT USED FOR UNKNOWN INDICATION
     Dosage: UNKNOWN
     Route: 048
  3. CHANTIX [Suspect]
     Indication: PRODUCT USED FOR UNKNOWN INDICATION
     Dosage: UNKNOWN
     Route: 065
  4. HYDROMORPHONE [Concomitant]
     Indication: PRODUCT USED FOR UNKNOWN INDICATION
     Dosage: UNKNOWN
     Route: 065
  5. GABAPENTIN [Concomitant]
     Indication: PRODUCT USED FOR UNKNOWN INDICATION
     Dosage: UNKNOWN
     Route: 065

REACTIONS (1)
  - Drug interaction [Unknown]
